FAERS Safety Report 4992069-0 (Version None)
Quarter: 2006Q2

REPORT INFORMATION
  Report Type: 
  Country: None (occurrence: None)
  Receive Date: 20060504
  Receipt Date: 20060426
  Transmission Date: 20061013
  Serious: Yes (Life-Threatening, Hospitalization)
  Sender: FDA-Public Use
  Company Number: GB-AVENTIS-200614635GDDC

PATIENT
  Sex: Male

DRUGS (1)
  1. HYDROCORTISONE [Suspect]

REACTIONS (1)
  - ANAPHYLACTIC SHOCK [None]
